FAERS Safety Report 8022142-4 (Version None)
Quarter: 2012Q1

REPORT INFORMATION
  Report Type: 
  Country: None (occurrence: None)
  Receive Date: 20120104
  Receipt Date: 20111227
  Transmission Date: 20120608
  Serious: Yes (Hospitalization)
  Sender: FDA-Public Use
  Company Number: CA-JNJFOC-20120100188

PATIENT
  Sex: Female

DRUGS (11)
  1. REMICADE [Suspect]
     Dosage: 100MG/VIAL
     Route: 042
     Dates: start: 20111101
  2. ACTONEL [Concomitant]
  3. SYNTHROID [Concomitant]
     Dosage: 75 MCG (?)
  4. REMICADE [Suspect]
     Indication: RHEUMATOID ARTHRITIS
     Dosage: 100MG/VIAL
     Route: 042
  5. CELEXA [Concomitant]
  6. PREVACID [Concomitant]
  7. TYLENOL-500 [Concomitant]
  8. DIOVAN HCT [Concomitant]
     Dosage: DIOVAN/HCT/160/25/QD
  9. CALCIUM ACETATE [Concomitant]
  10. VITAMIN D [Concomitant]
  11. LYRICA [Concomitant]

REACTIONS (1)
  - DIARRHOEA [None]
